FAERS Safety Report 4834020-X (Version None)
Quarter: 2005Q4

REPORT INFORMATION
  Report Type: 
  Country: None (occurrence: None)
  Receive Date: 20051122
  Receipt Date: 20051107
  Transmission Date: 20060501
  Serious: Yes (Other)
  Sender: FDA-Public Use
  Company Number: US-KINGPHARMUSA00001-K200501448

PATIENT

DRUGS (2)
  1. ALTACE [Suspect]
     Indication: HYPERTENSION
     Dosage: UNK, QD
     Route: 048
  2. FELODIPINE [Suspect]
     Indication: HYPERTENSION
     Dosage: UNK, UNK
     Route: 048

REACTIONS (5)
  - BLOOD PRESSURE INCREASED [None]
  - FATIGUE [None]
  - MALAISE [None]
  - PALPITATIONS [None]
  - SYNCOPE [None]
